FAERS Safety Report 9168928 (Version 2)
Quarter: 2013Q1

REPORT INFORMATION
  Report Type: Spontaneous
  Country: US (occurrence: US)
  Receive Date: 20130318
  Receipt Date: 20130322
  Transmission Date: 20140127
  Serious: Yes (Hospitalization)
  Sender: FDA-Public Use
  Company Number: US-PFIZER INC-2013084995

PATIENT
  Age: 63 Year
  Sex: Female
  Weight: 49.9 kg

DRUGS (7)
  1. PROTONIX [Suspect]
     Indication: GASTROOESOPHAGEAL REFLUX DISEASE
     Dosage: 40 MG, 2X/DAY
  2. CELEXA [Suspect]
     Dosage: 10 MG, DAILY
  3. AMITRIPTYLINE [Suspect]
     Dosage: 50 MG, DAILY
  4. VITAMIN D [Suspect]
     Dosage: 50000 IU, UNK
  5. VITAMIN B12 [Suspect]
     Dosage: UNK
  6. DURAGESIC [Concomitant]
     Indication: PAIN
     Dosage: UNK
  7. DIAZEPAM [Concomitant]
     Indication: MUSCLE SPASMS
     Dosage: 10 MG, AS NEEDED

REACTIONS (6)
  - Cholelithiasis [Unknown]
  - Nausea [Not Recovered/Not Resolved]
  - Epistaxis [Not Recovered/Not Resolved]
  - Arthralgia [Not Recovered/Not Resolved]
  - Hypersomnia [Unknown]
  - Somnolence [Unknown]
